FAERS Safety Report 5908643-0 (Version None)
Quarter: 2008Q4

REPORT INFORMATION
  Report Type: 
  Country: None (occurrence: None)
  Receive Date: 20081006
  Receipt Date: 20080922
  Transmission Date: 20090506
  Serious: Yes (Other)
  Sender: FDA-Public Use
  Company Number: DE-ELI_LILLY_AND_COMPANY-DE200809001485

PATIENT
  Sex: Female
  Weight: 76 kg

DRUGS (8)
  1. PEMETREXED [Suspect]
     Indication: BRONCHIAL CARCINOMA
     Dosage: 881.87 MG, UNK
     Dates: start: 20071112
  2. PEMETREXED [Suspect]
     Dosage: 929.19 MG, UNK
     Dates: start: 20080130
  3. CISPLATIN [Suspect]
     Indication: BRONCHIAL CARCINOMA
     Dosage: 134 MG, UNK
     Dates: start: 20071112
  4. CISPLATIN [Suspect]
     Dosage: 139.54 MG, UNK
     Dates: start: 20080130
  5. ERLOTINIB [Concomitant]
     Indication: BRONCHIAL CARCINOMA
     Dates: end: 20080520
  6. ACETAMINOPHEN [Concomitant]
     Indication: NECK PAIN
     Dates: start: 20071106, end: 20071106
  7. THYRONAJOD [Concomitant]
     Indication: HYPOTHYROIDISM
     Dates: start: 20070101
  8. PAROXETINE HCL [Concomitant]
     Indication: PANIC DISORDER
     Dates: start: 20060101

REACTIONS (2)
  - DENTAL CARIES [None]
  - DRY MOUTH [None]
